FAERS Safety Report 8457510-X (Version None)
Quarter: 2012Q2

REPORT INFORMATION
  Report Type: 
  Country: None (occurrence: None)
  Receive Date: 20120622
  Receipt Date: 20120621
  Transmission Date: 20120825
  Serious: Yes (Hospitalization)
  Sender: FDA-Public Use
  Company Number: US-AMGEN-USASP2012036488

PATIENT
  Age: 59 Year
  Sex: Female

DRUGS (1)
  1. ENBREL [Suspect]
     Indication: RHEUMATOID ARTHRITIS
     Dosage: 50 MG, QWK
     Dates: start: 20080817, end: 20120301

REACTIONS (5)
  - EXTREMITY NECROSIS [None]
  - DIARRHOEA [None]
  - MEMORY IMPAIRMENT [None]
  - VOMITING [None]
  - NAUSEA [None]
